FAERS Safety Report 7235201-0 (Version None)
Quarter: 2011Q1

REPORT INFORMATION
  Report Type: 
  Country: None (occurrence: None)
  Receive Date: 20110120
  Receipt Date: 20110117
  Transmission Date: 20110831
  Serious: Yes (Hospitalization)
  Sender: FDA-Public Use
  Company Number: JP-BRISTOL-MYERS SQUIBB COMPANY-15490840

PATIENT
  Age: 65 Year

DRUGS (2)
  1. CISPLATIN [Suspect]
     Indication: CERVIX CARCINOMA
     Dosage: CYCLE 7 STARTED ON 22DEC2010
     Route: 042
  2. S-1 [Suspect]
     Indication: CERVIX CARCINOMA
     Dosage: CYCLE 1 24JUN-07JUL2009. CYCLE 7 22DEC10-04JAN11
     Route: 048
     Dates: start: 20090624

REACTIONS (1)
  - DEEP VEIN THROMBOSIS [None]
